FAERS Safety Report 5659921-4 (Version None)
Quarter: 2008Q1

REPORT INFORMATION
  Report Type: 
  Country: None (occurrence: None)
  Receive Date: 20080311
  Receipt Date: 20070809
  Transmission Date: 20080703
  Serious: No
  Sender: FDA-Public Use
  Company Number: US-BAYER-200712577BCC

PATIENT
  Age: 17 Year
  Sex: Female
  Weight: 77 kg

DRUGS (2)
  1. ALEVE [Suspect]
     Indication: MIGRAINE
     Dosage: UNIT DOSE: 220 MG
     Route: 048
     Dates: start: 20070809
  2. BCP [Concomitant]

REACTIONS (2)
  - FEELING HOT [None]
  - PYREXIA [None]
